FAERS Safety Report 13187319 (Version 2)
Quarter: 2017Q1

REPORT INFORMATION
  Report Type: Report from Study
  Country: US (occurrence: US)
  Receive Date: 20170206
  Receipt Date: 20170223
  Transmission Date: 20170428
  Serious: Yes (Other)
  Sender: FDA-Public Use
  Company Number: PHEH2017US002936

PATIENT
  Age: 43 Year
  Sex: Female
  Weight: 55.78 kg

DRUGS (1)
  1. GILENYA [Suspect]
     Active Substance: FINGOLIMOD HYDROCHLORIDE
     Indication: MULTIPLE SCLEROSIS
     Dosage: 0.5 MG, QD
     Route: 048
     Dates: start: 20160316, end: 201611

REACTIONS (14)
  - Urinary incontinence [Unknown]
  - Gait spastic [Unknown]
  - Constipation [Unknown]
  - Gait disturbance [Unknown]
  - Influenza [Unknown]
  - Musculoskeletal stiffness [Unknown]
  - Anal incontinence [Unknown]
  - Concomitant disease aggravated [Unknown]
  - Paraesthesia [Unknown]
  - Limb discomfort [Unknown]
  - Asthenia [Unknown]
  - Disturbance in attention [Unknown]
  - Hypoacusis [Unknown]
  - Ependymoma [Not Recovered/Not Resolved]

NARRATIVE: CASE EVENT DATE: 20160923
